FAERS Safety Report 7412595-4 (Version None)
Quarter: 2011Q2

REPORT INFORMATION
  Report Type: 
  Country: None (occurrence: None)
  Receive Date: 20110413
  Receipt Date: 20110408
  Transmission Date: 20111010
  Serious: Yes (Death, Other)
  Sender: FDA-Public Use
  Company Number: US-JNJFOC-20110404342

PATIENT
  Age: 90 Year
  Sex: Female

DRUGS (1)
  1. LEVAQUIN [Suspect]
     Indication: INFECTION
     Route: 065

REACTIONS (5)
  - MUSCULAR WEAKNESS [None]
  - DEATH [None]
  - HALLUCINATION [None]
  - FATIGUE [None]
  - NIGHTMARE [None]
